FAERS Safety Report 7688187-9 (Version None)
Quarter: 2011Q3

REPORT INFORMATION
  Report Type: 
  Country: None (occurrence: None)
  Receive Date: 20110817
  Receipt Date: 20110506
  Transmission Date: 20111222
  Serious: No
  Sender: FDA-Public Use
  Company Number: US-GLAXOSMITHKLINE-A0926394A

PATIENT
  Age: 67 Year
  Sex: Male

DRUGS (15)
  1. UNKNOWN MEDICATION [Concomitant]
  2. CHLORPROMAZINE [Concomitant]
  3. VOTRIENT [Suspect]
     Indication: RENAL CELL CARCINOMA
     Dosage: 200MG THREE TIMES PER DAY
     Route: 048
     Dates: start: 20110331, end: 20110505
  4. VITAMIN B1 TAB [Concomitant]
  5. DIPYRIDAMOLE [Concomitant]
  6. ASPIRIN [Concomitant]
  7. ZOLPIDEM [Concomitant]
  8. ATENOLOL [Concomitant]
  9. SYMBICORT [Concomitant]
  10. NITROSTAT [Concomitant]
  11. ONDANSETRON HCL [Concomitant]
  12. NIACIN [Concomitant]
  13. SIMAVASTATIN [Concomitant]
  14. CITALOPRAM HYDROBROMIDE [Concomitant]
  15. VITAMIN B-12 [Concomitant]

REACTIONS (4)
  - VOMITING [None]
  - RASH [None]
  - DECREASED APPETITE [None]
  - DIARRHOEA [None]
